FAERS Safety Report 4947527-1 (Version None)
Quarter: 2006Q1

REPORT INFORMATION
  Report Type: 
  Country: None (occurrence: None)
  Receive Date: 20060313
  Receipt Date: 20060302
  Transmission Date: 20060701
  Serious: Yes (Other)
  Sender: FDA-Public Use
  Company Number: 2006031355

PATIENT
  Age: 51 Year
  Sex: Female
  Weight: 136.0791 kg

DRUGS (6)
  1. NORVASC [Suspect]
     Indication: HYPERTENSION
     Dosage: 5 MG (5 MG, QD) ORAL
     Route: 048
  2. ATENOLOL [Concomitant]
  3. FUROSEMIDE [Concomitant]
  4. BENICAR [Concomitant]
  5. FLEXERIL [Concomitant]
  6. ZYRTEC-D 12 HOUR [Concomitant]

REACTIONS (4)
  - AORTIC DISSECTION [None]
  - DIABETES MELLITUS [None]
  - FEELING ABNORMAL [None]
  - PAIN [None]
